FAERS Safety Report 7292989-0 (Version None)
Quarter: 2011Q1

REPORT INFORMATION
  Report Type: 
  Country: None (occurrence: None)
  Receive Date: 20110215
  Receipt Date: 20110207
  Transmission Date: 20110831
  Serious: Yes (Hospitalization, Other)
  Sender: FDA-Public Use
  Company Number: US-ROCHE-726993

PATIENT
  Sex: Female
  Weight: 52.2 kg

DRUGS (2)
  1. ORTHO TRI-CYCLEN [Concomitant]
  2. ACCUTANE [Suspect]
     Indication: ACNE
     Route: 065
     Dates: start: 20010228, end: 20010701

REACTIONS (7)
  - COLITIS ULCERATIVE [None]
  - ERYTHEMA NODOSUM [None]
  - FISTULA [None]
  - DRY SKIN [None]
  - APHTHOUS STOMATITIS [None]
  - ANAL ABSCESS [None]
  - INJURY [None]
